FAERS Safety Report 12061010 (Version 1)
Quarter: 2016Q1

REPORT INFORMATION
  Report Type: Spontaneous
  Country: FR (occurrence: FR)
  Receive Date: 20160210
  Receipt Date: 20160210
  Transmission Date: 20160526
  Serious: Yes (Life-Threatening, Other)
  Sender: FDA-Public Use
  Company Number: FR-TEVA-632827ISR

PATIENT
  Age: 28 Year
  Sex: Female
  Weight: 85.5 kg

DRUGS (16)
  1. NALTREXONE (CHLORHYDRATE DE) [Suspect]
     Active Substance: NALTREXONE
     Indication: TOXICITY TO VARIOUS AGENTS
     Dosage: 40 DOSAGE FORMS DAILY;
     Route: 048
     Dates: start: 20160117
  2. VERATRAN [Suspect]
     Active Substance: CLOTIAZEPAM
     Indication: TOXICITY TO VARIOUS AGENTS
     Dosage: 9 DOSAGE FORMS DAILY;
     Route: 048
     Dates: start: 20160117
  3. VENLAFAXINE [Suspect]
     Active Substance: VENLAFAXINE HYDROCHLORIDE
     Indication: TOXICITY TO VARIOUS AGENTS
     Dosage: 88 DOSAGE FORMS DAILY;
     Route: 048
     Dates: start: 20160117
  4. XEROQUEL [Suspect]
     Active Substance: QUETIAPINE FUMARATE
     Indication: TOXICITY TO VARIOUS AGENTS
     Dosage: 40 DOSAGE FORMS DAILY;
     Route: 048
     Dates: start: 20160117
  5. ZYRTEC [Suspect]
     Active Substance: CETIRIZINE HYDROCHLORIDE
     Indication: TOXICITY TO VARIOUS AGENTS
     Dosage: 15 DOSAGE FORMS DAILY;
     Route: 048
     Dates: start: 20160117
  6. BACLOFEN. [Suspect]
     Active Substance: BACLOFEN
     Indication: TOXICITY TO VARIOUS AGENTS
     Dosage: 96 DOSAGE FORMS DAILY;
     Route: 048
     Dates: start: 20160117
  7. DAFLON [Suspect]
     Active Substance: DIOSMIN\HESPERIDIN
     Indication: TOXICITY TO VARIOUS AGENTS
     Dosage: 80 DOSAGE FORMS DAILY;
     Route: 048
     Dates: start: 20160117
  8. PYOSTACINE [Suspect]
     Active Substance: PRISTINAMYCIN
     Indication: TOXICITY TO VARIOUS AGENTS
     Dosage: 16 DOSAGE FORMS DAILY;
     Route: 048
     Dates: start: 20160117
  9. ASPIRINE [Suspect]
     Active Substance: ASPIRIN
     Indication: TOXICITY TO VARIOUS AGENTS
     Dosage: 14 GRAM DAILY;
     Route: 048
     Dates: start: 20160117
  10. SULFARLEM [Suspect]
     Active Substance: ANETHOLTRITHION
     Indication: TOXICITY TO VARIOUS AGENTS
     Dosage: 150 DOSAGE FORMS DAILY;
     Route: 048
     Dates: start: 20160117
  11. ALPRAZOLAM. [Suspect]
     Active Substance: ALPRAZOLAM
     Indication: TOXICITY TO VARIOUS AGENTS
     Dosage: 70 DOSAGE FORMS DAILY;
     Route: 048
     Dates: start: 20160117
  12. SPASFON [Suspect]
     Active Substance: PHLOROGLUCINOL
     Indication: TOXICITY TO VARIOUS AGENTS
     Dosage: 20 DOSAGE FORMS DAILY;
     Route: 048
     Dates: start: 20160117
  13. THERALENE [Suspect]
     Active Substance: TRIMEPRAZINE
     Indication: TOXICITY TO VARIOUS AGENTS
     Dosage: 43 DOSAGE FORMS DAILY;
     Route: 048
     Dates: start: 20160117
  14. KETUM [Suspect]
     Active Substance: KETOPROFEN
     Indication: TOXICITY TO VARIOUS AGENTS
     Dosage: 17 DOSAGE FORMS DAILY;
     Route: 048
     Dates: start: 20160117
  15. ATARAX [Suspect]
     Active Substance: HYDROXYZINE\HYDROXYZINE HYDROCHLORIDE
     Indication: TOXICITY TO VARIOUS AGENTS
     Dosage: 32 DOSAGE FORMS DAILY;
     Route: 048
     Dates: start: 20160117
  16. DOLIPRANE [Suspect]
     Active Substance: ACETAMINOPHEN
     Indication: TOXICITY TO VARIOUS AGENTS
     Dosage: 8 DOSAGE FORMS DAILY;
     Route: 048
     Dates: start: 20160117

REACTIONS (8)
  - Coma [Recovered/Resolved]
  - Blood glucose increased [None]
  - Toxicity to various agents [Recovered/Resolved]
  - Hypothermia [None]
  - Oxygen saturation decreased [None]
  - Blood pressure decreased [None]
  - Seizure [Recovered/Resolved]
  - Withdrawal syndrome [None]

NARRATIVE: CASE EVENT DATE: 20160117
